FAERS Safety Report 16249989 (Version 1)
Quarter: 2019Q2

REPORT INFORMATION
  Report Type: Spontaneous
  Country: US (occurrence: US)
  Receive Date: 20190428
  Receipt Date: 20190428
  Transmission Date: 20190711
  Serious: Yes (Disabling)
  Sender: FDA-Public Use
  Company Number: None

PATIENT
  Age: 9 Year
  Sex: Male
  Weight: 53.07 kg

DRUGS (4)
  1. VITAMIN D [Concomitant]
     Active Substance: VITAMIN D NOS
  2. SUPPRELIN LA [Suspect]
     Active Substance: HISTRELIN ACETATE
     Dates: start: 20140801, end: 20170801
  3. AZATHIOPRINE. [Concomitant]
     Active Substance: AZATHIOPRINE
  4. RITUXIMAB. [Concomitant]
     Active Substance: RITUXIMAB

REACTIONS (7)
  - Pain [None]
  - Ankle fracture [None]
  - Swelling [None]
  - Immunoglobulin G4 related disease [None]
  - Pathological fracture [None]
  - Complication associated with device [None]
  - Idiopathic orbital inflammation [None]

NARRATIVE: CASE EVENT DATE: 20140801
